FAERS Safety Report 24150292 (Version 2)
Quarter: 2024Q3

REPORT INFORMATION
  Report Type: Report from Study
  Country: FR (occurrence: FR)
  Receive Date: 20240730
  Receipt Date: 20240731
  Transmission Date: 20241016
  Serious: Yes (Death)
  Sender: STEMLINE THERAPEUTICS
  Company Number: FR-Stemline Therapeutics, Inc.-2024ST004461

PATIENT
  Sex: Female

DRUGS (2)
  1. ORSERDU [Suspect]
     Active Substance: ELACESTRANT
     Indication: Breast cancer metastatic
     Route: 048
  2. ORSERDU [Suspect]
     Active Substance: ELACESTRANT
     Indication: Hormone receptor positive HER2 negative breast cancer

REACTIONS (1)
  - Death [Fatal]
